FAERS Safety Report 25049644 (Version 2)
Quarter: 2025Q2

REPORT INFORMATION
  Report Type: Report from Study
  Country: US (occurrence: US)
  Receive Date: 20250307
  Receipt Date: 20250507
  Transmission Date: 20250717
  Serious: Yes (Death, Other)
  Sender: UCB
  Company Number: US-UCBSA-2025012772

PATIENT
  Sex: Female

DRUGS (1)
  1. FINTEPLA [Suspect]
     Active Substance: FENFLURAMINE
     Indication: Lennox-Gastaut syndrome
     Dosage: 5.5 MILLILITER, 2X/DAY (BID)

REACTIONS (3)
  - Respiratory failure [Fatal]
  - Infection [Fatal]
  - Weight decreased [Unknown]

NARRATIVE: CASE EVENT DATE: 20250101
